FAERS Safety Report 8450163-6 (Version None)
Quarter: 2012Q2

REPORT INFORMATION
  Report Type: 
  Country: None (occurrence: None)
  Receive Date: 20120620
  Receipt Date: 20120612
  Transmission Date: 20120825
  Serious: Yes (Hospitalization)
  Sender: FDA-Public Use
  Company Number: US-BAYER-2011-083641

PATIENT
  Age: 51 Year
  Sex: Female
  Weight: 101.13 kg

DRUGS (10)
  1. AMITRIPTYLINE HCL [Concomitant]
  2. OXYCONTIN [Concomitant]
  3. MAXZIDE [Concomitant]
  4. DIAZEPAM [Concomitant]
  5. NORCO [Concomitant]
  6. TOPAMAX [Concomitant]
  7. CELEBREX [Concomitant]
  8. PROZAC [Concomitant]
  9. MORPHINE [Concomitant]
  10. YASMIN [Suspect]
     Indication: MENSTRUAL CYCLE MANAGEMENT
     Dates: start: 20050101, end: 20060101

REACTIONS (7)
  - PULMONARY EMBOLISM [None]
  - GENERAL PHYSICAL HEALTH DETERIORATION [None]
  - EMOTIONAL DISTRESS [None]
  - ANXIETY [None]
  - DEEP VEIN THROMBOSIS [None]
  - PAIN [None]
  - ANHEDONIA [None]
